FAERS Safety Report 5145760-X (Version None)
Quarter: 2006Q4

REPORT INFORMATION
  Report Type: 
  Country: None (occurrence: None)
  Receive Date: 20061102
  Receipt Date: 20061020
  Transmission Date: 20070319
  Serious: Yes (Other)
  Sender: FDA-Public Use
  Company Number: 2006129310

PATIENT
  Sex: Female

DRUGS (1)
  1. NEURONTIN [Suspect]
     Indication: PERIPHERAL VASCULAR DISORDER
     Dosage: ORAL
     Route: 048

REACTIONS (3)
  - CONDITION AGGRAVATED [None]
  - PARESIS [None]
  - POOR PERIPHERAL CIRCULATION [None]
